FAERS Safety Report 16059475 (Version 1)
Quarter: 2019Q1

REPORT INFORMATION
  Report Type: Spontaneous
  Country: US (occurrence: US)
  Receive Date: 20190311
  Receipt Date: 20190311
  Transmission Date: 20190418
  Serious: No
  Sender: FDA-Public Use
  Company Number: US-GALDERMA-US18021752

PATIENT
  Age: 69 Year
  Sex: Female

DRUGS (6)
  1. FORTEO [Concomitant]
     Active Substance: TERIPARATIDE
  2. HUMIRA [Concomitant]
     Active Substance: ADALIMUMAB
  3. DOXYCYCLINE. [Suspect]
     Active Substance: DOXYCYCLINE
     Indication: ROSACEA
     Route: 048
     Dates: start: 2017, end: 2017
  4. PREDNISONE. [Concomitant]
     Active Substance: PREDNISONE
  5. DIFFERIN GEL [Suspect]
     Active Substance: ADAPALENE
     Indication: ROSACEA
     Dosage: 0.1%
     Route: 061
     Dates: start: 2017, end: 2017
  6. TRULICITY [Concomitant]
     Active Substance: DULAGLUTIDE

REACTIONS (2)
  - Drug ineffective [Unknown]
  - Product use in unapproved indication [Recovered/Resolved]

NARRATIVE: CASE EVENT DATE: 2017
